FAERS Safety Report 7475076-8 (Version None)
Quarter: 2011Q1

REPORT INFORMATION
  Report Type: 
  Country: None (occurrence: None)
  Receive Date: 20110302
  Receipt Date: 20100811
  Transmission Date: 20110831
  Serious: Yes (Other)
  Sender: FDA-Public Use
  Company Number: 163-21880-10080942

PATIENT
  Age: 43 Year
  Sex: Male

DRUGS (2)
  1. REVLIMID [Suspect]
     Indication: LYMPHOMA
     Dosage: 25 MG, QD X 21D, PO
     Route: 048
     Dates: start: 20100623
  2. MEGESTROL ACETATE [Concomitant]

REACTIONS (5)
  - MOBILITY DECREASED [None]
  - FALL [None]
  - DECREASED APPETITE [None]
  - APATHY [None]
  - PUBIS FRACTURE [None]
